FAERS Safety Report 4970974-9 (Version None)
Quarter: 2006Q2

REPORT INFORMATION
  Report Type: 
  Country: None (occurrence: None)
  Receive Date: 20060411
  Receipt Date: 20060411
  Transmission Date: 20061013
  Serious: Yes (Other)
  Sender: FDA-Public Use
  Company Number: None

PATIENT
  Age: 59 Year
  Sex: Male
  Weight: 99.7913 kg

DRUGS (2)
  1. AUGMENTIN XR [Suspect]
     Indication: EAR INFECTION
     Dosage: TWO   TWICE DAILY
     Dates: start: 20041026, end: 20041029
  2. AUGMENTIN '125' [Concomitant]

REACTIONS (1)
  - GUILLAIN-BARRE SYNDROME [None]
